FAERS Safety Report 5573801-4 (Version None)
Quarter: 2007Q4

REPORT INFORMATION
  Report Type: 
  Country: None (occurrence: None)
  Receive Date: 20071226
  Receipt Date: 20071217
  Transmission Date: 20080405
  Serious: Yes (Other)
  Sender: FDA-Public Use
  Company Number: BE-PFIZER INC-2007105192

PATIENT
  Age: 77 Year
  Sex: Female
  Weight: 70 kg

DRUGS (3)
  1. DALACIN [Suspect]
     Indication: TOOTH INFECTION
     Route: 048
     Dates: start: 20071101, end: 20071101
  2. FENOFIBRATE [Suspect]
     Indication: HYPERCHOLESTEROLAEMIA
     Route: 048
     Dates: start: 20031001, end: 20071114
  3. PRAVASINE [Concomitant]

REACTIONS (2)
  - ARTHRALGIA [None]
  - MYALGIA [None]
